FAERS Safety Report 22790464 (Version 3)
Quarter: 2023Q4

REPORT INFORMATION
  Report Type: Spontaneous
  Country: BH (occurrence: BH)
  Receive Date: 20230805
  Receipt Date: 20231023
  Transmission Date: 20240110
  Serious: Yes (Hospitalization, Other)
  Sender: FDA-Public Use
  Company Number: BH-BAYER-2023A108356

PATIENT
  Age: 69 Year
  Sex: Female

DRUGS (3)
  1. EYLEA [Suspect]
     Active Substance: AFLIBERCEPT
     Indication: Eye discharge
     Dosage: LEFT EYE EVERY MONTH, SOLUTION FOR INJECTION, 40MG/ML
     Dates: start: 20230427, end: 20230427
  2. EYLEA [Suspect]
     Active Substance: AFLIBERCEPT
     Dosage: UNK, APPLIED IN LEFT EYE, SOLUTION FOR INJECTION, 40MG/ML
     Dates: start: 20230524, end: 20230524
  3. EYLEA [Suspect]
     Active Substance: AFLIBERCEPT
     Dosage: UNK, APPLIED IN LEFT EYE, SOLUTION FOR INJECTION, 40MG/ML

REACTIONS (5)
  - Syncope [Unknown]
  - Pulmonary oedema [Recovered/Resolved]
  - Cardiac failure acute [Recovered/Resolved]
  - Acute kidney injury [Recovering/Resolving]
  - Dyspnoea [Recovering/Resolving]

NARRATIVE: CASE EVENT DATE: 20230427
